FAERS Safety Report 12197241 (Version 1)
Quarter: 2016Q1

REPORT INFORMATION
  Report Type: Spontaneous
  Country: FR (occurrence: FR)
  Receive Date: 20160321
  Receipt Date: 20160321
  Transmission Date: 20160526
  Serious: Yes (Hospitalization)
  Sender: FDA-Public Use
  Company Number: FR-ROCHE-1728814

PATIENT
  Age: 58 Year
  Sex: Male

DRUGS (4)
  1. ARAVA [Concomitant]
     Active Substance: LEFLUNOMIDE
     Route: 065
     Dates: start: 201110, end: 201404
  2. ARAVA [Concomitant]
     Active Substance: LEFLUNOMIDE
     Route: 065
     Dates: start: 2006
  3. ARAVA [Concomitant]
     Active Substance: LEFLUNOMIDE
     Route: 065
     Dates: start: 2007
  4. ROACTEMRA [Suspect]
     Active Substance: TOCILIZUMAB
     Indication: RHEUMATOID ARTHRITIS
     Route: 042
     Dates: start: 201110, end: 20151126

REACTIONS (2)
  - Thrombosis [Recovered/Resolved]
  - Pulmonary embolism [Recovered/Resolved]

NARRATIVE: CASE EVENT DATE: 201601
